FAERS Safety Report 4924025-2 (Version None)
Quarter: 2006Q1

REPORT INFORMATION
  Report Type: 
  Country: None (occurrence: None)
  Receive Date: 20060227
  Receipt Date: 20060120
  Transmission Date: 20060701
  Serious: Yes (Life-Threatening, Hospitalization)
  Sender: FDA-Public Use
  Company Number: 2006CG00163

PATIENT
  Age: 79 Year
  Sex: Male

DRUGS (10)
  1. OMEPRAZOLE [Suspect]
     Route: 048
     Dates: start: 20051101, end: 20060101
  2. TAHOR [Suspect]
     Dates: end: 20060101
  3. ADANCOR [Concomitant]
  4. ALDACTAZINE [Concomitant]
  5. LASILIX [Concomitant]
  6. COVERSYL [Concomitant]
  7. ART 50 [Concomitant]
  8. COUMADIN [Concomitant]
  9. VENTOLIN [Concomitant]
  10. NASACORT [Concomitant]

REACTIONS (1)
  - THROMBOCYTOPENIC PURPURA [None]
